FAERS Safety Report 4468304-4 (Version None)
Quarter: 2004Q4

REPORT INFORMATION
  Report Type: 
  Country: None (occurrence: None)
  Receive Date: 20041007
  Receipt Date: 20041004
  Transmission Date: 20050328
  Serious: Yes (Life-Threatening, Hospitalization)
  Sender: FDA-Public Use
  Company Number: PL-BRISTOL-MYERS SQUIBB COMPANY-12720595

PATIENT
  Age: 63 Year
  Sex: Female

DRUGS (9)
  1. CYCLOPHOSPHAMIDE [Suspect]
     Indication: CHRONIC LYMPHOCYTIC LEUKAEMIA
     Dosage: LAST DOSE:  14-JAN-2003.  DAYS 5, 6 AND 7 EVERY 28 DAYS
     Route: 042
     Dates: start: 20030112, end: 20030112
  2. FLUDARABINE PHOSPHATE [Suspect]
     Indication: CHRONIC LYMPHOCYTIC LEUKAEMIA
     Dosage: LAST DOSE:  14-JAN-2003.  DAYS 5, 6 AND 7 EVERY 28 DAYS
     Route: 042
     Dates: start: 20030112, end: 20030112
  3. GENASENSE [Suspect]
     Indication: CHRONIC LYMPHOCYTIC LEUKAEMIA
     Dosage: LAST DOSE:  14-JAN-2003.  DAYS 1 THRU 7 EVERY 28 DAYS.
     Route: 042
     Dates: start: 20030108, end: 20030108
  4. AMOXICILLIN [Concomitant]
  5. ENOXAPARIN SODIUM [Concomitant]
  6. ACTIVASE [Concomitant]
  7. HEPARIN [Concomitant]
  8. CEFTAZIDIME [Concomitant]
  9. METRONIDAZOLE [Concomitant]

REACTIONS (1)
  - DEEP VEIN THROMBOSIS [None]
